FAERS Safety Report 13874753 (Version 1)
Quarter: 2017Q3

REPORT INFORMATION
  Report Type: Spontaneous
  Country: US (occurrence: US)
  Receive Date: 20170816
  Receipt Date: 20170816
  Transmission Date: 20171127
  Serious: No
  Sender: FDA-Public Use
  Company Number: US-ROCHE-1015486

PATIENT
  Age: 81 Year
  Sex: Male

DRUGS (14)
  1. LUCENTIS [Suspect]
     Active Substance: RANIBIZUMAB
     Indication: VITREOUS FLOATERS
     Dosage: OS (LEFT EYE)?DATE OF LAST DOSE PRIOR TO SAE WAS 09/JAN/2014
     Route: 050
     Dates: start: 20111014, end: 20111014
  2. LUCENTIS [Suspect]
     Active Substance: RANIBIZUMAB
     Indication: VISUAL IMPAIRMENT
     Route: 065
     Dates: start: 20111015
  3. TEMAZEPAM. [Concomitant]
     Active Substance: TEMAZEPAM
     Indication: INSOMNIA
     Route: 048
  4. AMLODIPINE [Concomitant]
     Active Substance: AMLODIPINE BESYLATE
     Indication: HYPERTENSION
     Route: 048
  5. BYSTOLIC [Concomitant]
     Active Substance: NEBIVOLOL HYDROCHLORIDE
     Indication: HYPERTENSION
     Route: 048
  6. LUCENTIS [Suspect]
     Active Substance: RANIBIZUMAB
     Indication: AGE-RELATED MACULAR DEGENERATION
     Dosage: RIGHT EYE
     Route: 065
     Dates: start: 20060724
  7. FINASTERIDE. [Concomitant]
     Active Substance: FINASTERIDE
     Indication: BLOOD PRESSURE MEASUREMENT
     Route: 048
  8. ELMIRON [Concomitant]
     Active Substance: PENTOSAN POLYSULFATE SODIUM
     Indication: RENAL PAIN
     Route: 048
  9. ASPIRIN. [Concomitant]
     Active Substance: ASPIRIN
     Indication: ANTICOAGULANT THERAPY
     Route: 048
  10. LUCENTIS [Suspect]
     Active Substance: RANIBIZUMAB
     Dosage: BOTH EYES
     Route: 065
     Dates: start: 20091030
  11. LOVASTATIN. [Concomitant]
     Active Substance: LOVASTATIN
     Indication: HYPERLIPIDAEMIA
     Route: 048
  12. LISINOPRIL. [Concomitant]
     Active Substance: LISINOPRIL
     Indication: HYPERTENSION
     Route: 048
  13. FLOMAX [Concomitant]
     Active Substance: TAMSULOSIN HYDROCHLORIDE
     Route: 065
  14. PRILOSEC [Concomitant]
     Active Substance: OMEPRAZOLE MAGNESIUM
     Indication: GASTROOESOPHAGEAL REFLUX DISEASE
     Route: 048
     Dates: start: 20110121

REACTIONS (2)
  - Visual impairment [Recovered/Resolved]
  - Vitreous floaters [Recovered/Resolved]

NARRATIVE: CASE EVENT DATE: 20111014
